FAERS Safety Report 7733026-0 (Version None)
Quarter: 2011Q3

REPORT INFORMATION
  Report Type: 
  Country: None (occurrence: None)
  Receive Date: 20110907
  Receipt Date: 20101028
  Transmission Date: 20111222
  Serious: Yes (Other)
  Sender: FDA-Public Use
  Company Number: US-PFIZER INC-2011205738

PATIENT
  Sex: Female
  Weight: 73.9 kg

DRUGS (6)
  1. SUTENT [Suspect]
     Dosage: 25 MG, UNK
     Route: 048
     Dates: start: 20100101
  2. IBUPROFEN [Concomitant]
     Dosage: UNK
  3. SUTENT [Suspect]
     Indication: ANGIOSARCOMA
     Dosage: 50 MG, UNK
     Route: 048
     Dates: start: 20100201
  4. SUTENT [Suspect]
     Dosage: 37.5 MG, UNK
     Route: 048
     Dates: start: 20100101
  5. TYLENOL-500 [Concomitant]
     Dosage: UNK
  6. ADVAIR DISKUS 100/50 [Concomitant]
     Dosage: UNK

REACTIONS (1)
  - NEURALGIA [None]
